FAERS Safety Report 23678275 (Version 1)
Quarter: 2024Q1

REPORT INFORMATION
  Report Type: Other
  Country: PL (occurrence: PL)
  Receive Date: 20240327
  Receipt Date: 20240327
  Transmission Date: 20240409
  Serious: Yes (Other)
  Sender: FDA-Public Use
  Company Number: PL-B.Braun Medical Inc.-2154920

PATIENT
  Age: 41 Year
  Sex: Female

DRUGS (4)
  1. MEROPENEM [Suspect]
     Active Substance: MEROPENEM
     Indication: Pyrexia
  2. MEROPENEM [Suspect]
     Active Substance: MEROPENEM
     Indication: Vision blurred
  3. HEMIN [Concomitant]
     Active Substance: HEMIN
  4. MORPHINE [Concomitant]
     Active Substance: MORPHINE

REACTIONS (2)
  - Porphyria [Unknown]
  - Off label use [Unknown]
